FAERS Safety Report 6894628-7 (Version None)
Quarter: 2010Q3

REPORT INFORMATION
  Report Type: 
  Country: None (occurrence: None)
  Receive Date: 20100802
  Receipt Date: 20100721
  Transmission Date: 20110219
  Serious: Yes (Hospitalization)
  Sender: FDA-Public Use
  Company Number: PHHO2010DE03966

PATIENT
  Sex: Male

DRUGS (4)
  1. TASIGNA [Suspect]
     Indication: ACUTE MYELOID LEUKAEMIA
     Dosage: 200 MG, QD
     Route: 048
     Dates: start: 20100302
  2. AFINITOR [Suspect]
     Indication: ACUTE MYELOID LEUKAEMIA
     Dosage: 5 MG, QD
     Route: 048
     Dates: start: 20100420
  3. ASPIRIN [Concomitant]
  4. K CL TAB [Concomitant]

REACTIONS (5)
  - ANAEMIA [None]
  - FEBRILE NEUTROPENIA [None]
  - HYPOKALAEMIA [None]
  - ORAL HERPES [None]
  - PNEUMONIA FUNGAL [None]
